FAERS Safety Report 8001119-9 (Version None)
Quarter: 2011Q4

REPORT INFORMATION
  Report Type: 
  Country: None (occurrence: None)
  Receive Date: 20111222
  Receipt Date: 20111219
  Transmission Date: 20120403
  Serious: No
  Sender: FDA-Public Use
  Company Number: US-BAYER-2011-122349

PATIENT
  Sex: Male
  Weight: 99.773 kg

DRUGS (8)
  1. NORVASC [Concomitant]
  2. ASPIRIN [Concomitant]
  3. ULTRAVIST 150 [Suspect]
     Indication: COMPUTERISED TOMOGRAM ABDOMEN
     Dosage: 100 ML, ONCE
     Route: 042
     Dates: start: 20111219, end: 20111219
  4. VITAMIN B COMPLEX CAP [Concomitant]
  5. RAMIPRIL [Concomitant]
  6. VITAMIN D [Concomitant]
  7. METOPROLOL TARTRATE [Concomitant]
  8. PLAVIX [Concomitant]

REACTIONS (1)
  - LIP SWELLING [None]
